FAERS Safety Report 13631356 (Version 3)
Quarter: 2017Q3

REPORT INFORMATION
  Report Type: Spontaneous
  Country: MY (occurrence: MY)
  Receive Date: 20170608
  Receipt Date: 20170727
  Transmission Date: 20171127
  Serious: Yes (Hospitalization)
  Sender: FDA-Public Use
  Company Number: MY-BAYER-2017-103624

PATIENT
  Age: 56 Year
  Sex: Female
  Weight: 61.3 kg

DRUGS (4)
  1. ETORICOXIB [Concomitant]
     Active Substance: ETORICOXIB
     Indication: PAIN
     Dosage: 120MG
     Route: 048
     Dates: start: 20160411
  2. ESOMEPRAZOLE [Concomitant]
     Active Substance: ESOMEPRAZOLE
     Indication: GASTRITIS
     Dosage: 40MG
     Route: 048
     Dates: start: 20160411
  3. CIPROBAY [Suspect]
     Active Substance: CIPROFLOXACIN
     Indication: PHARYNGITIS
     Dosage: 200MG
     Route: 041
     Dates: start: 20160411, end: 20160411
  4. DEXAMETHASONE. [Concomitant]
     Active Substance: DEXAMETHASONE
     Indication: SWELLING
     Dosage: 8MG
     Route: 041
     Dates: start: 20160411, end: 20160411

REACTIONS (7)
  - Palpitations [Recovered/Resolved]
  - Epistaxis [Recovered/Resolved]
  - Eye swelling [Recovered/Resolved]
  - Rash erythematous [Recovered/Resolved]
  - Chest discomfort [Recovered/Resolved]
  - Pharyngeal oedema [Recovered/Resolved]
  - Swelling [Recovered/Resolved]

NARRATIVE: CASE EVENT DATE: 20160411
